FAERS Safety Report 7225498-5 (Version None)
Quarter: 2011Q1

REPORT INFORMATION
  Report Type: 
  Country: None (occurrence: None)
  Receive Date: 20110113
  Receipt Date: 20110105
  Transmission Date: 20110831
  Serious: Yes (Other)
  Sender: FDA-Public Use
  Company Number: US-MERCK-1101USA00182

PATIENT
  Age: 79 Year
  Sex: Female

DRUGS (1)
  1. FOSAMAX [Suspect]
     Route: 065

REACTIONS (1)
  - FEMUR FRACTURE [None]
